FAERS Safety Report 13075235 (Version 2)
Quarter: 2017Q1

REPORT INFORMATION
  Report Type: Spontaneous
  Country: JP (occurrence: JP)
  Receive Date: 20161230
  Receipt Date: 20170215
  Transmission Date: 20170428
  Serious: Yes (Other)
  Sender: FDA-Public Use
  Company Number: JP-BAUSCH-BL-2016-032462

PATIENT
  Age: 52 Year
  Sex: Male

DRUGS (2)
  1. CLENAFIN TOPICAL SOLUTION [Suspect]
     Active Substance: EFINACONAZOLE
     Indication: TINEA PEDIS
     Route: 061
     Dates: start: 20160919
  2. LEVOFLOXACIN HEMIHYDRATE [Concomitant]
     Active Substance: LEVOFLOXACIN
     Indication: PRODUCT USED FOR UNKNOWN INDICATION
     Route: 048
     Dates: start: 20160918, end: 20160919

REACTIONS (3)
  - Dermatitis contact [Unknown]
  - Dermatitis [Unknown]
  - Skin infection [Recovering/Resolving]

NARRATIVE: CASE EVENT DATE: 201609
